FAERS Safety Report 5005472-X (Version None)
Quarter: 2006Q2

REPORT INFORMATION
  Report Type: 
  Country: None (occurrence: None)
  Receive Date: 20060518
  Receipt Date: 20060512
  Transmission Date: 20061013
  Serious: Yes (Other)
  Sender: FDA-Public Use
  Company Number: US-MERCK-0605USA02529

PATIENT
  Age: 78 Year
  Sex: Female

DRUGS (7)
  1. FOSAMAX [Concomitant]
     Indication: OSTEOPOROSIS
     Route: 048
     Dates: start: 19990101
  2. CITRACAL [Concomitant]
     Route: 065
  3. CELEBREX [Concomitant]
     Route: 065
  4. NEXIUM [Concomitant]
     Route: 065
  5. [THERAPY UNSPECIFIED] [Concomitant]
     Route: 065
  6. TAMOXIFEN CITRATE [Concomitant]
     Route: 065
  7. FOSAMAX PLUS D [Suspect]
     Indication: OSTEOPOROSIS
     Route: 048
     Dates: end: 20060426

REACTIONS (2)
  - ARTHRALGIA [None]
  - BLADDER DISORDER [None]
